FAERS Safety Report 20144572 (Version 1)
Quarter: 2021Q4

REPORT INFORMATION
  Report Type: Spontaneous
  Country: US (occurrence: None)
  Receive Date: 20211202
  Receipt Date: 20211202
  Transmission Date: 20220303
  Serious: No
  Sender: FDA-Public Use
  Company Number: None

PATIENT
  Age: 30 Year
  Sex: Female

DRUGS (1)
  1. CASIRIVIMAB\IMDEVIMAB [Suspect]
     Active Substance: CASIRIVIMAB\IMDEVIMAB
     Dates: start: 20211124, end: 20211124

REACTIONS (7)
  - Abdominal pain upper [None]
  - Feeling hot [None]
  - Flushing [None]
  - Dyspnoea [None]
  - Oxygen saturation decreased [None]
  - Retching [None]
  - Cough [None]

NARRATIVE: CASE EVENT DATE: 20211124
